FAERS Safety Report 23866710 (Version 2)
Quarter: 2024Q2

REPORT INFORMATION
  Report Type: Spontaneous
  Country: CA (occurrence: CA)
  Receive Date: 20240517
  Receipt Date: 20240523
  Transmission Date: 20240716
  Serious: Yes (Other)
  Sender: FDA-Public Use
  Company Number: CA-GILEAD-2024-0672639

PATIENT
  Sex: Female

DRUGS (1)
  1. TRODELVY [Suspect]
     Active Substance: SACITUZUMAB GOVITECAN-HZIY
     Indication: Product used for unknown indication
     Dosage: UNK
     Route: 065

REACTIONS (5)
  - Metastases to central nervous system [Unknown]
  - Febrile neutropenia [Unknown]
  - Neutropenic colitis [Unknown]
  - Diarrhoea [Unknown]
  - Toxicity to various agents [Unknown]
